FAERS Safety Report 23515130 (Version 1)
Quarter: 2024Q1

REPORT INFORMATION
  Report Type: Report from Study
  Country: US (occurrence: US)
  Receive Date: 20240213
  Receipt Date: 20240213
  Transmission Date: 20240409
  Serious: Yes (Other)
  Sender: FDA-Public Use
  Company Number: US-ABBVIE-5628126

PATIENT
  Age: 63 Year
  Sex: Male

DRUGS (1)
  1. VENCLEXTA [Suspect]
     Active Substance: VENETOCLAX
     Indication: Acute myeloid leukaemia
     Dosage: FORM STRENGTH: 100MG?FREQUENCY TEXT: DAILY FOR DAYS 1 TO 14 OF 28 DAY
     Route: 048
     Dates: end: 202311

REACTIONS (1)
  - Stem cell transplant [Recovering/Resolving]

NARRATIVE: CASE EVENT DATE: 20231219
